FAERS Safety Report 13976351 (Version 1)
Quarter: 2017Q3

REPORT INFORMATION
  Report Type: Spontaneous
  Country: IN (occurrence: IN)
  Receive Date: 20170915
  Receipt Date: 20170915
  Transmission Date: 20171128
  Serious: Yes (Other)
  Sender: FDA-Public Use
  Company Number: IN-BRISTOL-MYERS SQUIBB COMPANY-BMS-2017-081284

PATIENT
  Sex: Male

DRUGS (1)
  1. NIVOLUMAB [Suspect]
     Active Substance: NIVOLUMAB
     Indication: GLIOSARCOMA
     Dosage: N/A
     Route: 065

REACTIONS (3)
  - Product use in unapproved indication [Unknown]
  - Meningitis aseptic [Unknown]
  - Acute psychosis [Unknown]
